FAERS Safety Report 7826066-4 (Version None)
Quarter: 2011Q4

REPORT INFORMATION
  Report Type: 
  Country: None (occurrence: None)
  Receive Date: 20111019
  Receipt Date: 20111007
  Transmission Date: 20120403
  Serious: Yes (Other)
  Sender: FDA-Public Use
  Company Number: JP-ASTRAZENECA-2011SE59855

PATIENT
  Age: 36 Year
  Sex: Female

DRUGS (6)
  1. HUMAN ANTITROMBIN 3 [Concomitant]
  2. GABEXATE MESILATE [Concomitant]
     Dosage: 2 GRAM/DAY
  3. HEPARIN [Concomitant]
  4. ALBUMIN (HUMAN) [Concomitant]
     Dosage: 25 M/DAY
  5. MEROPENEM [Suspect]
     Route: 042
  6. BLOOD SUBSTITUTES [Concomitant]

REACTIONS (2)
  - MATERNAL EXPOSURE DURING PREGNANCY [None]
  - ABORTION INDUCED [None]
